FAERS Safety Report 13363991 (Version 1)
Quarter: 2017Q1

REPORT INFORMATION
  Report Type: Spontaneous
  Country: US (occurrence: US)
  Receive Date: 20170323
  Receipt Date: 20170323
  Transmission Date: 20170429
  Serious: No
  Sender: FDA-Public Use
  Company Number: US-SHIRE-US201706540

PATIENT
  Sex: Female

DRUGS (1)
  1. XIIDRA [Suspect]
     Active Substance: LIFITEGRAST
     Indication: DRY EYE
     Dosage: 1 GTT (OU), 2X/DAY:BID
     Route: 047
     Dates: start: 20170308, end: 20170317

REACTIONS (3)
  - Dysgeusia [Unknown]
  - Instillation site pain [Unknown]
  - Instillation site reaction [Unknown]

NARRATIVE: CASE EVENT DATE: 201703
